FAERS Safety Report 8496313-7 (Version None)
Quarter: 2012Q2

REPORT INFORMATION
  Report Type: 
  Country: None (occurrence: None)
  Receive Date: 20120405
  Receipt Date: 20110314
  Transmission Date: 20120825
  Serious: Yes (Other)
  Sender: FDA-Public Use
  Company Number: PHHY2011US20931

PATIENT
  Sex: Female

DRUGS (3)
  1. TOPROL-XL [Suspect]
  2. LOTREL [Suspect]
     Dosage: 10/2.5MG
  3. TENORMIN [Suspect]

REACTIONS (3)
  - HYPERTENSION [None]
  - DEHYDRATION [None]
  - BLOOD PRESSURE INADEQUATELY CONTROLLED [None]
